FAERS Safety Report 12676900 (Version 1)
Quarter: 2016Q3

REPORT INFORMATION
  Report Type: Spontaneous
  Country: US (occurrence: US)
  Receive Date: 20160823
  Receipt Date: 20160823
  Transmission Date: 20161109
  Serious: No
  Sender: FDA-Public Use
  Company Number: US-TEVA-670538USA

PATIENT
  Sex: Female

DRUGS (1)
  1. CLONIDINE. [Suspect]
     Active Substance: CLONIDINE
     Dosage: .2 MILLIGRAM DAILY;
     Route: 062
     Dates: start: 201602

REACTIONS (3)
  - Product adhesion issue [Unknown]
  - Application site pruritus [Unknown]
  - Application site irritation [Recovered/Resolved]

NARRATIVE: CASE EVENT DATE: 2016
